FAERS Safety Report 4948867-2 (Version None)
Quarter: 2006Q1

REPORT INFORMATION
  Report Type: 
  Country: None (occurrence: None)
  Receive Date: 20060315
  Receipt Date: 20060302
  Transmission Date: 20060701
  Serious: Yes (Death, Other)
  Sender: FDA-Public Use
  Company Number: 2005156969

PATIENT
  Age: 48 Year
  Sex: Male

DRUGS (6)
  1. NEURONTIN [Suspect]
     Indication: BACK PAIN
     Dosage: 900 MG (300 MG, 3 IN 1 D)
     Dates: start: 20020122
  2. METHADONE (METHADONE) [Concomitant]
  3. XANAX [Concomitant]
  4. LORTAB [Concomitant]
  5. SKELAXIN [Concomitant]
  6. VIOXX [Concomitant]

REACTIONS (7)
  - ARTERIAL INJURY [None]
  - COMPLETED SUICIDE [None]
  - DRUG INEFFECTIVE [None]
  - GUN SHOT WOUND [None]
  - INJURY [None]
  - INTRACRANIAL INJURY [None]
  - SUBARACHNOID HAEMORRHAGE [None]
